FAERS Safety Report 15021923 (Version 1)
Quarter: 2018Q2

REPORT INFORMATION
  Report Type: Spontaneous
  Country: ES (occurrence: ES)
  Receive Date: 20180618
  Receipt Date: 20180618
  Transmission Date: 20180711
  Serious: Yes (Life-Threatening, Other)
  Sender: FDA-Public Use
  Company Number: ES-VIIV HEALTHCARE LIMITED-ES2018103891

PATIENT
  Age: 45 Year
  Sex: Male

DRUGS (1)
  1. TRIUMEQ [Suspect]
     Active Substance: ABACAVIR SULFATE\DOLUTEGRAVIR SODIUM\LAMIVUDINE
     Indication: ACQUIRED IMMUNODEFICIENCY SYNDROME
     Dosage: UNK
     Route: 048
     Dates: start: 20160624, end: 20180529

REACTIONS (1)
  - Suicidal ideation [Recovering/Resolving]

NARRATIVE: CASE EVENT DATE: 20170501
